FAERS Safety Report 17689893 (Version 1)
Quarter: 2020Q2

REPORT INFORMATION
  Report Type: Spontaneous
  Country: US (occurrence: US)
  Receive Date: 20200421
  Receipt Date: 20200421
  Transmission Date: 20200714
  Serious: Yes (Other)
  Sender: FDA-Public Use
  Company Number: None

PATIENT
  Age: 11 Year
  Sex: Male
  Weight: 48.6 kg

DRUGS (4)
  1. CEFDINIR. [Suspect]
     Active Substance: CEFDINIR
     Indication: CELLULITIS
     Dosage: ?          QUANTITY:5 LIQUID;?
     Route: 048
     Dates: start: 20200401, end: 20200407
  2. CEFDINIR. [Suspect]
     Active Substance: CEFDINIR
     Indication: CONJUNCTIVITIS
     Dosage: ?          QUANTITY:5 LIQUID;?
     Route: 048
     Dates: start: 20200401, end: 20200407
  3. VITAMIN D3 [Concomitant]
     Active Substance: CHOLECALCIFEROL
  4. ALBUTEROL. [Concomitant]
     Active Substance: ALBUTEROL

REACTIONS (3)
  - Malaise [None]
  - Product odour abnormal [None]
  - Rash [None]

NARRATIVE: CASE EVENT DATE: 20200401
